FAERS Safety Report 4542028-7 (Version None)
Quarter: 2004Q4

REPORT INFORMATION
  Report Type: 
  Country: None (occurrence: None)
  Receive Date: 20041223
  Receipt Date: 20041008
  Transmission Date: 20050328
  Serious: No
  Sender: FDA-Public Use
  Company Number: US-JNJFOC-20041003400

PATIENT
  Age: 45 Year
  Sex: Female
  Weight: 67.1324 kg

DRUGS (5)
  1. ORTHO EVRA [Suspect]
     Indication: MENSTRUATION IRREGULAR
     Dosage: 1 DOSE(S) 3 IN4  WEEK TRANSDERMAL
     Route: 062
     Dates: start: 20040701
  2. OSCAL (CALCIUM CARBONATE) [Concomitant]
  3. ACTINEL (CRYOHEPTADINE HYDROCHLORIDE) [Concomitant]
  4. SYNTHROID [Concomitant]
  5. PRILOSEC [Concomitant]

REACTIONS (4)
  - ABDOMINAL PAIN UPPER [None]
  - DIZZINESS [None]
  - METRORRHAGIA [None]
  - NAUSEA [None]
